FAERS Safety Report 12798258 (Version 1)
Quarter: 2016Q3

REPORT INFORMATION
  Report Type: Spontaneous
  Country: US (occurrence: US)
  Receive Date: 20160930
  Receipt Date: 20160930
  Transmission Date: 20161109
  Serious: Yes (Death, Hospitalization)
  Sender: FDA-Public Use
  Company Number: US-UNITED THERAPEUTICS-UNT-2016-014916

PATIENT
  Age: 66 Year
  Sex: Male
  Weight: 88.44 kg

DRUGS (2)
  1. TYVASO [Suspect]
     Active Substance: TREPROSTINIL
     Indication: PULMONARY ARTERIAL HYPERTENSION
     Dosage: 18-54 ?G, QID
     Dates: start: 20160908, end: 201609
  2. REVATIO [Concomitant]
     Active Substance: SILDENAFIL CITRATE
     Indication: PRODUCT USED FOR UNKNOWN INDICATION

REACTIONS (6)
  - Infection [Fatal]
  - Decreased appetite [Unknown]
  - Drug effect decreased [Unknown]
  - Dyspnoea [Unknown]
  - Confusional state [Unknown]
  - Swelling face [Unknown]

NARRATIVE: CASE EVENT DATE: 201609
